FAERS Safety Report 22537102 (Version 2)
Quarter: 2023Q2

REPORT INFORMATION
  Report Type: Spontaneous
  Country: US (occurrence: US)
  Receive Date: 20230608
  Receipt Date: 20230620
  Transmission Date: 20230722
  Serious: Yes (Hospitalization)
  Sender: FDA-Public Use
  Company Number: US-TEVA-2023-US-2893298

PATIENT
  Age: 74 Year
  Sex: Female

DRUGS (3)
  1. ANAGRELIDE [Suspect]
     Active Substance: ANAGRELIDE
     Indication: Suicide attempt
     Route: 048
  2. CLONAZEPAM [Concomitant]
     Active Substance: CLONAZEPAM
     Indication: Suicide attempt
     Route: 048
  3. CITALOPRAM [Concomitant]
     Active Substance: CITALOPRAM HYDROBROMIDE
     Indication: Suicide attempt
     Route: 048

REACTIONS (9)
  - Intentional overdose [Unknown]
  - Tachycardia [Recovered/Resolved]
  - Electrocardiogram QT prolonged [Recovered/Resolved]
  - Orthostatic hypotension [Recovered/Resolved]
  - Hypotension [Recovered/Resolved]
  - Somnolence [Recovered/Resolved]
  - Pupillary disorder [Recovered/Resolved]
  - Periorbital haemorrhage [Recovered/Resolved]
  - Epistaxis [Recovered/Resolved]
